FAERS Safety Report 17219413 (Version 3)
Quarter: 2020Q1

REPORT INFORMATION
  Report Type: Spontaneous
  Country: US (occurrence: US)
  Receive Date: 20191231
  Receipt Date: 20200110
  Transmission Date: 20200409
  Serious: Yes (Other)
  Sender: FDA-Public Use
  Company Number: US-SUNOVION-2019SUN005563

PATIENT
  Age: 42 Year
  Sex: Female

DRUGS (1)
  1. LATUDA [Suspect]
     Active Substance: LURASIDONE HYDROCHLORIDE
     Indication: BIPOLAR DISORDER
     Dosage: 60 MG
     Route: 048

REACTIONS (2)
  - Fear [Not Recovered/Not Resolved]
  - Suicide threat [Unknown]

NARRATIVE: CASE EVENT DATE: 20191219
